FAERS Safety Report 10049332 (Version 1)
Quarter: 2014Q2

REPORT INFORMATION
  Report Type: Report from Study
  Country: US (occurrence: US)
  Receive Date: 20140401
  Receipt Date: 20140401
  Transmission Date: 20141212
  Serious: No
  Sender: FDA-Public Use
  Company Number: US-009507513-1403USA009480

PATIENT
  Age: 62 Year
  Sex: Female

DRUGS (2)
  1. TEMODAR [Suspect]
     Indication: GLIOBLASTOMA MULTIFORME
     Dosage: 120 MG, DAILY FOR 6 WEEKS AND THEN 5 DAYS A WEEK FOR ONCE A MONTH
     Route: 048
     Dates: start: 20140311, end: 201403
  2. MELATONIN [Concomitant]

REACTIONS (1)
  - Rash pruritic [Unknown]
